FAERS Safety Report 7205837-1 (Version None)
Quarter: 2010Q4

REPORT INFORMATION
  Report Type: 
  Country: None (occurrence: None)
  Receive Date: 20101231
  Receipt Date: 20101222
  Transmission Date: 20110411
  Serious: Yes (Life-Threatening, Hospitalization)
  Sender: FDA-Public Use
  Company Number: DE-PFIZER INC-2010177499

PATIENT
  Age: 66 Year
  Sex: Female

DRUGS (1)
  1. SUNITINIB MALATE [Suspect]
     Dosage: UNK
     Dates: start: 20101119, end: 20101125

REACTIONS (1)
  - HEPATIC HAEMORRHAGE [None]
